FAERS Safety Report 7686173-6 (Version None)
Quarter: 2011Q3

REPORT INFORMATION
  Report Type: 
  Country: None (occurrence: None)
  Receive Date: 20110816
  Receipt Date: 20110810
  Transmission Date: 20111222
  Serious: Yes (Other)
  Sender: FDA-Public Use
  Company Number: US-ELI_LILLY_AND_COMPANY-US200903003338

PATIENT
  Sex: Female

DRUGS (14)
  1. AMITRIPTYLINE HCL [Concomitant]
     Indication: DEPRESSION
  2. CELEBREX [Concomitant]
     Indication: INFLAMMATION
  3. GLUCOPHAGE [Concomitant]
     Indication: DIABETES MELLITUS
  4. ETODOLAC [Concomitant]
     Indication: INFLAMMATION
  5. BYETTA [Suspect]
     Dosage: 10 UG, BID
     Dates: end: 20071025
  6. PROVERA [Concomitant]
     Indication: HORMONE REPLACEMENT THERAPY
  7. ULTRAM [Concomitant]
     Indication: PAIN
  8. ASPIRIN [Concomitant]
     Indication: PAIN
  9. VYTORIN [Concomitant]
     Indication: HYPERCHOLESTEROLAEMIA
  10. BENICAR HCT [Concomitant]
     Indication: HYPERTENSION
  11. BYETTA [Suspect]
     Dosage: 5 UG, BID
     Dates: start: 20060522
  12. VIVELLE [Concomitant]
     Indication: HORMONE REPLACEMENT THERAPY
  13. NABUMETONE [Concomitant]
     Indication: INFLAMMATION
  14. METAGLIP [Concomitant]
     Indication: DIABETES MELLITUS

REACTIONS (3)
  - PANCREATITIS [None]
  - EMOTIONAL DISTRESS [None]
  - RENAL INJURY [None]
